FAERS Safety Report 6645246-7 (Version None)
Quarter: 2010Q1

REPORT INFORMATION
  Report Type: 
  Country: None (occurrence: None)
  Receive Date: 20100322
  Receipt Date: 20100309
  Transmission Date: 20100710
  Serious: Yes (Hospitalization, Other)
  Sender: FDA-Public Use
  Company Number: PHHY2009JP58802

PATIENT
  Age: 11 Year
  Sex: Male

DRUGS (3)
  1. SANDIMMUNE [Suspect]
     Indication: HISTIOCYTOSIS HAEMATOPHAGIC
     Dosage: 150 MG, UNK
     Dates: start: 20090502, end: 20090511
  2. SANDIMMUNE [Suspect]
     Dosage: 150 MG/DAY
     Route: 042
     Dates: start: 20090612
  3. DEXAMETHASONE [Suspect]
     Indication: HISTIOCYTOSIS HAEMATOPHAGIC

REACTIONS (12)
  - BLOOD BETA-D-GLUCAN ABNORMAL [None]
  - BONE MARROW FAILURE [None]
  - CLOSTRIDIAL INFECTION [None]
  - INFECTION [None]
  - INFLAMMATION [None]
  - MELAENA [None]
  - PANCYTOPENIA [None]
  - PERITONITIS [None]
  - SHOCK HAEMORRHAGIC [None]
  - SMALL INTESTINE ULCER [None]
  - SURGERY [None]
  - THROMBOTIC MICROANGIOPATHY [None]
